FAERS Safety Report 4345177-1 (Version None)
Quarter: 2004Q2

REPORT INFORMATION
  Report Type: 
  Country: None (occurrence: None)
  Receive Date: 20040423
  Receipt Date: 20040311
  Transmission Date: 20050107
  Serious: Yes (Life-Threatening, Hospitalization)
  Sender: FDA-Public Use
  Company Number: GB-BRISTOL-MYERS SQUIBB COMPANY-12531398

PATIENT
  Age: 9 Year
  Sex: Female
  Weight: 26 kg

DRUGS (4)
  1. VIDEX [Suspect]
     Indication: HIV INFECTION
     Route: 048
     Dates: start: 20011001, end: 20040224
  2. TENOFOVIR [Concomitant]
     Indication: HIV INFECTION
     Dates: start: 20011001
  3. KALETRA [Concomitant]
     Indication: HIV INFECTION
     Dosage: CAPSULES
     Dates: start: 20011001
  4. CO-TRIMOXAZOLE [Concomitant]
     Indication: HIV INFECTION
     Dates: start: 19971001

REACTIONS (5)
  - BLOOD GLUCOSE DECREASED [None]
  - HEPATIC STEATOSIS [None]
  - HYPOTENSION [None]
  - PANCREATITIS ACUTE [None]
  - PLEURAL EFFUSION [None]
